FAERS Safety Report 5693164-3 (Version None)
Quarter: 2008Q2

REPORT INFORMATION
  Report Type: 
  Country: None (occurrence: None)
  Receive Date: 20080403
  Receipt Date: 20080326
  Transmission Date: 20081010
  Serious: Yes (Hospitalization)
  Sender: FDA-Public Use
  Company Number: US-JNJFOC-20080306358

PATIENT
  Sex: Male
  Weight: 67 kg

DRUGS (7)
  1. REMICADE [Suspect]
     Indication: DRUG DEPENDENCE
     Route: 042
  2. REMICADE [Suspect]
     Indication: CROHN'S DISEASE
     Route: 042
  3. 5-ASA [Concomitant]
     Route: 048
  4. METHOTREXATE [Concomitant]
  5. URSODIOL [Concomitant]
  6. PREVACID [Concomitant]
  7. ORAL SUPPLEMENTS [Concomitant]

REACTIONS (1)
  - GASTRITIS [None]
